FAERS Safety Report 11030748 (Version 1)
Quarter: 2015Q2

REPORT INFORMATION
  Report Type: Spontaneous
  Country: US (occurrence: None)
  Receive Date: 20150414
  Receipt Date: 20150414
  Transmission Date: 20150821
  Serious: Yes (Hospitalization, Other)
  Sender: FDA-Public Use
  Company Number: None

PATIENT
  Age: 77 Year
  Sex: Female
  Weight: 60.78 kg

DRUGS (4)
  1. METOPROLOL 50MG [Suspect]
     Active Substance: METOPROLOL
     Indication: HYPERTENSION
     Dosage: 1 A DAY
     Route: 048
     Dates: start: 20130101, end: 20141002
  2. DILTIAZEM HYDROCHLORIDE EXTENDED RELEASE [Concomitant]
     Active Substance: DILTIAZEM HYDROCHLORIDE
  3. VITAMIN D3 [Concomitant]
     Active Substance: CHOLECALCIFEROL
  4. XARELTO [Concomitant]
     Active Substance: RIVAROXABAN

REACTIONS (7)
  - Joint swelling [None]
  - Blood pressure increased [None]
  - Blood pressure decreased [None]
  - Palpitations [None]
  - Anxiety [None]
  - Transient ischaemic attack [None]
  - Chest pain [None]

NARRATIVE: CASE EVENT DATE: 20140530
